FAERS Safety Report 8486936-3 (Version None)
Quarter: 2012Q3

REPORT INFORMATION
  Report Type: 
  Country: None (occurrence: None)
  Receive Date: 20120704
  Receipt Date: 20120331
  Transmission Date: 20120928
  Serious: No
  Sender: FDA-Public Use
  Company Number: US-BAUSCH-2011BL006513

PATIENT
  Age: 70 Year
  Sex: Female

DRUGS (4)
  1. ZIRGAN [Suspect]
     Indication: HERPES SIMPLEX OPHTHALMIC
     Route: 047
     Dates: start: 20110829, end: 20110902
  2. DUREZOL [Concomitant]
     Indication: PRODUCT USED FOR UNKNOWN INDICATION
     Route: 047
     Dates: start: 20110829, end: 20110829
  3. ISTALOL [Concomitant]
     Indication: PRODUCT USED FOR UNKNOWN INDICATION
     Route: 047
     Dates: start: 20110829, end: 20111001
  4. DUREZOL [Concomitant]
     Route: 047
     Dates: start: 20110830

REACTIONS (1)
  - DRUG INEFFECTIVE [None]
